FAERS Safety Report 6579322-4 (Version None)
Quarter: 2010Q1

REPORT INFORMATION
  Report Type: 
  Country: None (occurrence: None)
  Receive Date: 20100209
  Receipt Date: 20100209
  Transmission Date: 20100710
  Serious: Yes (Other)
  Sender: FDA-Public Use
  Company Number: None

PATIENT
  Age: 53 Year
  Sex: Female
  Weight: 70.7611 kg

DRUGS (1)
  1. ZICAM SWAB APPLICATOR ZICAM [Suspect]
     Indication: NASOPHARYNGITIS
     Dosage: 1 SWAB 2 OR 3 TIMES A DAY NASAL
     Route: 045
     Dates: start: 20091219, end: 20091224

REACTIONS (3)
  - AGEUSIA [None]
  - ANOSMIA [None]
  - SINUS DISORDER [None]
